FAERS Safety Report 8300272-7 (Version None)
Quarter: 2012Q1

REPORT INFORMATION
  Report Type: 
  Country: None (occurrence: None)
  Receive Date: 20120323
  Receipt Date: 20100922
  Transmission Date: 20120608
  Serious: Yes (Other)
  Sender: FDA-Public Use
  Company Number: PHHY2010US63571

PATIENT
  Age: 75 Year
  Sex: Male

DRUGS (1)
  1. TOBI [Suspect]
     Indication: CYSTIC FIBROSIS
     Dosage: 300 MG BID, 28 DAYS ON THEN 28 DAYS OFF, INHALATION
     Route: 055
     Dates: start: 20100215

REACTIONS (2)
  - UPPER RESPIRATORY TRACT INFECTION [None]
  - PNEUMONIA [None]
